FAERS Safety Report 6930273-2 (Version None)
Quarter: 2010Q3

REPORT INFORMATION
  Report Type: 
  Country: None (occurrence: None)
  Receive Date: 20100818
  Receipt Date: 20100805
  Transmission Date: 20110219
  Serious: Yes (Hospitalization)
  Sender: FDA-Public Use
  Company Number: FR-JNJFOC-20100804830

PATIENT
  Sex: Female

DRUGS (4)
  1. ZALDIAR [Suspect]
     Indication: TORTICOLLIS
     Route: 048
  2. BIRODOGYL [Suspect]
     Indication: PRODUCT USED FOR UNKNOWN INDICATION
     Route: 048
  3. IBUPROFEN TABLETS [Suspect]
     Indication: ASTHENIA
     Route: 048
  4. IBUPROFEN TABLETS [Suspect]
     Indication: GINGIVAL DISORDER
     Route: 048

REACTIONS (2)
  - AGRANULOCYTOSIS [None]
  - THROMBOCYTOPENIA [None]
